FAERS Safety Report 25225250 (Version 4)
Quarter: 2025Q4

REPORT INFORMATION
  Report Type: Report from Study
  Country: US (occurrence: US)
  Receive Date: 20250422
  Receipt Date: 20251216
  Transmission Date: 20260118
  Serious: Yes (Other)
  Sender: TAKEDA
  Company Number: US-TAKEDA-2025TUS037874

PATIENT
  Age: 2 Year
  Sex: Male

DRUGS (3)
  1. ADVATE [Suspect]
     Active Substance: ANTIHEMOPHILIC FACTOR, HUMAN RECOMBINANT
     Indication: Product used for unknown indication
     Dosage: 288 INTERNATIONAL UNIT
  2. ADVATE [Suspect]
     Active Substance: ANTIHEMOPHILIC FACTOR, HUMAN RECOMBINANT
     Dosage: 575 INTERNATIONAL UNIT
  3. ADVATE [Suspect]
     Active Substance: ANTIHEMOPHILIC FACTOR, HUMAN RECOMBINANT
     Dosage: 575 INTERNATIONAL UNIT

REACTIONS (7)
  - Eye contusion [Unknown]
  - Haemorrhage [Unknown]
  - Eye injury [Unknown]
  - Eye swelling [Unknown]
  - Fall [Recovered/Resolved]
  - Ear injury [Unknown]
  - Lip injury [Recovered/Resolved]

NARRATIVE: CASE EVENT DATE: 20250411
